FAERS Safety Report 7888267-9 (Version None)
Quarter: 2011Q4

REPORT INFORMATION
  Report Type: 
  Country: None (occurrence: None)
  Receive Date: 20111103
  Receipt Date: 20111025
  Transmission Date: 20120403
  Serious: Yes (Other)
  Sender: FDA-Public Use
  Company Number: US-MYLANLABS-2011S1021821

PATIENT
  Age: 21 Year
  Sex: Female

DRUGS (1)
  1. AMNESTEEM [Suspect]
     Dates: start: 20100618, end: 20100801

REACTIONS (2)
  - MATERNAL EXPOSURE BEFORE PREGNANCY [None]
  - ABORTION INDUCED [None]
